FAERS Safety Report 17360273 (Version 1)
Quarter: 2020Q1

REPORT INFORMATION
  Report Type: Spontaneous
  Country: US (occurrence: US)
  Receive Date: 20200117
  Receipt Date: 20200117
  Transmission Date: 20200409
  Serious: No
  Sender: FDA-Public Use
  Company Number: None

PATIENT
  Age: 60 Year
  Sex: Male

DRUGS (4)
  1. PREDNISONE. [Concomitant]
     Active Substance: PREDNISONE
  2. INVOKANA [Concomitant]
     Active Substance: CANAGLIFLOZIN
  3. TRULICITY [Concomitant]
     Active Substance: DULAGLUTIDE
  4. ZYTIGA [Suspect]
     Active Substance: ABIRATERONE ACETATE
     Indication: PROSTATE CANCER
     Route: 048
     Dates: start: 201911

REACTIONS (1)
  - Product use issue [None]

NARRATIVE: CASE EVENT DATE: 20191119
